FAERS Safety Report 8561614-0 (Version None)
Quarter: 2012Q3

REPORT INFORMATION
  Report Type: 
  Country: None (occurrence: None)
  Receive Date: 20120727
  Receipt Date: 20120727
  Transmission Date: 20120928
  Serious: Yes (Hospitalization)
  Sender: FDA-Public Use
  Company Number: None

PATIENT
  Age: 83 Year
  Sex: Female
  Weight: 99.2 kg

DRUGS (8)
  1. CIPROFLOXACIN HCL [Suspect]
  2. SEPTRA DS [Suspect]
     Indication: INFECTION
     Dosage: 800 MG-160 M BID, PO
     Route: 048
  3. SEROQUEL [Concomitant]
  4. SULAR [Concomitant]
  5. TYLENOL [Concomitant]
  6. ZOFRAN [Concomitant]
  7. COUMADIN [Suspect]
     Indication: DEEP VEIN THROMBOSIS
     Dosage: 3 MG, DAILY, PO
     Route: 048
  8. A.... [Concomitant]

REACTIONS (12)
  - PNEUMONIA [None]
  - URINARY TRACT INFECTION [None]
  - ASTHENIA [None]
  - HAEMATOCRIT DECREASED [None]
  - INTERNATIONAL NORMALISED RATIO INCREASED [None]
  - PROTHROMBIN TIME PROLONGED [None]
  - DIARRHOEA [None]
  - COAGULOPATHY [None]
  - DRUG INTERACTION [None]
  - HAEMOGLOBIN DECREASED [None]
  - FALL [None]
  - RETROPERITONEAL HAEMORRHAGE [None]
